FAERS Safety Report 24548224 (Version 4)
Quarter: 2024Q4

REPORT INFORMATION
  Report Type: Report from Study
  Country: US (occurrence: US)
  Receive Date: 20241025
  Receipt Date: 20241216
  Transmission Date: 20250114
  Serious: Yes (Other)
  Sender: ABBVIE
  Company Number: US-ABBVIE-5974953

PATIENT
  Age: 58 Year
  Sex: Female
  Weight: 90.718 kg

DRUGS (3)
  1. RINVOQ [Suspect]
     Active Substance: UPADACITINIB
     Indication: Rheumatoid arthritis
     Route: 048
     Dates: start: 20221001
  2. RINVOQ [Suspect]
     Active Substance: UPADACITINIB
     Indication: Rheumatoid arthritis
     Route: 048
     Dates: start: 2024
  3. PREDNISONE [Concomitant]
     Active Substance: PREDNISONE
     Indication: Rheumatoid arthritis

REACTIONS (15)
  - Meniscus injury [Recovering/Resolving]
  - Fall [Recovering/Resolving]
  - Pneumonia [Recovered/Resolved]
  - Patella fracture [Recovering/Resolving]
  - Respiratory tract congestion [Recovered/Resolved]
  - Respiratory tract congestion [Recovering/Resolving]
  - Nasopharyngitis [Recovered/Resolved]
  - Asthenia [Recovered/Resolved]
  - Allergic sinusitis [Recovered/Resolved]
  - Asthma [Recovering/Resolving]
  - Secretion discharge [Recovered/Resolved]
  - Allergic sinusitis [Recovering/Resolving]
  - Lower respiratory tract infection [Recovering/Resolving]
  - Malaise [Unknown]
  - Immunodeficiency [Unknown]

NARRATIVE: CASE EVENT DATE: 20230306
